FAERS Safety Report 7990709-5 (Version None)
Quarter: 2011Q4

REPORT INFORMATION
  Report Type: 
  Country: None (occurrence: None)
  Receive Date: 20111219
  Receipt Date: 20111219
  Transmission Date: 20120403
  Serious: Yes (Other)
  Sender: FDA-Public Use
  Company Number: None

PATIENT
  Age: 50 Year
  Sex: Male
  Weight: 80.739 kg

DRUGS (1)
  1. ZYRTEC [Suspect]

REACTIONS (2)
  - IMPAIRED DRIVING ABILITY [None]
  - CONFUSIONAL STATE [None]
